FAERS Safety Report 23248630 (Version 2)
Quarter: 2023Q4

REPORT INFORMATION
  Report Type: Report from Study
  Country: US (occurrence: US)
  Receive Date: 20231201
  Receipt Date: 20231212
  Transmission Date: 20240109
  Serious: Yes (Hospitalization, Other)
  Sender: FDA-Public Use
  Company Number: US-ALXN-A202304030

PATIENT
  Sex: Male

DRUGS (2)
  1. ULTOMIRIS [Suspect]
     Active Substance: RAVULIZUMAB-CWVZ
     Indication: Myasthenia gravis
     Dosage: UNK
     Route: 065
     Dates: start: 20230317
  2. PREDNISONE [Concomitant]
     Active Substance: PREDNISONE
     Indication: Product used for unknown indication
     Dosage: UNK
     Route: 065

REACTIONS (11)
  - Myasthenia gravis [Unknown]
  - Sepsis [Unknown]
  - Urinary tract infection [Recovering/Resolving]
  - Pseudomonas infection [Unknown]
  - Device related infection [Unknown]
  - Post procedural complication [Unknown]
  - Muscle twitching [Unknown]
  - Skin warm [Unknown]
  - Influenza [Unknown]
  - Muscular weakness [Unknown]
  - Dyspnoea [Recovering/Resolving]
